FAERS Safety Report 20593581 (Version 1)
Quarter: 2022Q1

REPORT INFORMATION
  Report Type: Spontaneous
  Country: US (occurrence: None)
  Receive Date: 20220315
  Receipt Date: 20220315
  Transmission Date: 20220423
  Serious: No
  Sender: FDA-Public Use
  Company Number: US-ROCHE-2772148

PATIENT
  Sex: Female

DRUGS (1)
  1. XOLAIR [Suspect]
     Active Substance: OMALIZUMAB
     Indication: Idiopathic urticaria
     Dosage: 150 MG/ML PRE FILLED SYRINGE
     Route: 058
     Dates: start: 20200911, end: 20210113

REACTIONS (3)
  - Urticaria [Unknown]
  - Off label use [Unknown]
  - Intentional product misuse [Unknown]
